FAERS Safety Report 21189510 (Version 3)
Quarter: 2022Q4

REPORT INFORMATION
  Report Type: Report from Study
  Country: US (occurrence: None)
  Receive Date: 20220809
  Receipt Date: 20221116
  Transmission Date: 20230113
  Serious: Yes (Death, Hospitalization, Other)
  Sender: FDA-Public Use
  Company Number: US-ROCHE-3155687

PATIENT
  Age: 65 Year
  Sex: Male
  Weight: 75.7 kg

DRUGS (11)
  1. ATEZOLIZUMAB [Suspect]
     Active Substance: ATEZOLIZUMAB
     Indication: Squamous cell carcinoma of the oral cavity
     Dosage: ON 14/JAN/2022, HE RECEIVED LAST DOSE OF ATEZOLIZUMAB
     Route: 041
     Dates: start: 20211203
  2. COREG [Concomitant]
     Active Substance: CARVEDILOL
  3. DECADRON [Concomitant]
     Active Substance: DEXAMETHASONE
  4. NEURONTIN [Concomitant]
     Active Substance: GABAPENTIN
  5. LIDOCAINE [Concomitant]
     Active Substance: LIDOCAINE
  6. ATIVAN [Concomitant]
     Active Substance: LORAZEPAM
  7. ZOFRAN [Concomitant]
     Active Substance: ONDANSETRON HYDROCHLORIDE
  8. ROXICODONE [Concomitant]
     Active Substance: OXYCODONE HYDROCHLORIDE
  9. COMPAZINE [Concomitant]
     Active Substance: PROCHLORPERAZINE MALEATE
  10. XARELTO [Concomitant]
     Active Substance: RIVAROXABAN
  11. CRESTOR [Concomitant]
     Active Substance: ROSUVASTATIN CALCIUM

REACTIONS (6)
  - Autoimmune disorder [Fatal]
  - Pneumonia aspiration [Unknown]
  - Seizure [Unknown]
  - Hypertension [Unknown]
  - Optic neuritis [Unknown]
  - Metastases to meninges [Unknown]

NARRATIVE: CASE EVENT DATE: 20220726
